FAERS Safety Report 18929722 (Version 3)
Quarter: 2021Q2

REPORT INFORMATION
  Report Type: Spontaneous
  Country: US (occurrence: US)
  Receive Date: 20210223
  Receipt Date: 20210621
  Transmission Date: 20210717
  Serious: Yes (Other)
  Sender: FDA-Public Use
  Company Number: US-ALXN-A202102448

PATIENT
  Age: 42 Year
  Sex: Male
  Weight: 111.11 kg

DRUGS (1)
  1. STRENSIQ [Suspect]
     Active Substance: ASFOTASE ALFA
     Indication: HYPOPHOSPHATASIA
     Dosage: 6 MG/KG (3 TIMES A WEEK)
     Route: 065
     Dates: start: 201908

REACTIONS (1)
  - Nephrolithiasis [Unknown]
